FAERS Safety Report 7921074-7 (Version None)
Quarter: 2011Q4

REPORT INFORMATION
  Report Type: 
  Country: None (occurrence: None)
  Receive Date: 20111117
  Receipt Date: 20111109
  Transmission Date: 20120403
  Serious: Yes (Hospitalization, Disabling, Other)
  Sender: FDA-Public Use
  Company Number: US-MERCK-1104USA03261

PATIENT
  Age: 58 Year
  Sex: Female

DRUGS (7)
  1. LAMICTAL [Concomitant]
     Indication: DEPRESSION
     Route: 065
     Dates: start: 20000101
  2. FOSAMAX [Suspect]
     Indication: OSTEOPOROSIS
     Route: 048
     Dates: start: 20070901, end: 20080201
  3. CYMBALTA [Concomitant]
     Indication: DEPRESSION
     Route: 065
     Dates: start: 20050101
  4. FOSAMAX [Suspect]
     Indication: OSTEOPENIA
     Route: 048
     Dates: start: 20070901, end: 20080201
  5. ALENDRONATE SODIUM [Suspect]
     Indication: OSTEOPOROSIS
     Route: 048
     Dates: start: 20080201, end: 20100301
  6. ATIVAN [Concomitant]
     Indication: ANXIETY
     Route: 065
     Dates: start: 20060101, end: 20090101
  7. ZOLOFT [Concomitant]
     Indication: DEPRESSION
     Route: 065
     Dates: start: 20010101

REACTIONS (23)
  - ORAL DISORDER [None]
  - ANKLE FRACTURE [None]
  - MULTIPLE INJURIES [None]
  - OSTEOMYELITIS [None]
  - GINGIVAL DISORDER [None]
  - EXPOSED BONE IN JAW [None]
  - PARAESTHESIA [None]
  - BLOOD CHOLESTEROL INCREASED [None]
  - DENTAL CARIES [None]
  - FISTULA DISCHARGE [None]
  - BONE DISORDER [None]
  - ORAL PAIN [None]
  - ADVERSE EVENT [None]
  - GINGIVAL INFECTION [None]
  - OSTEONECROSIS OF JAW [None]
  - ABSCESS ORAL [None]
  - HYPOAESTHESIA ORAL [None]
  - PAIN IN JAW [None]
  - JAW DISORDER [None]
  - ORAL INFECTION [None]
  - IMPAIRED HEALING [None]
  - EXOSTOSIS [None]
  - STOMATITIS [None]
